FAERS Safety Report 4313063-9 (Version None)
Quarter: 2004Q1

REPORT INFORMATION
  Report Type: 
  Country: None (occurrence: None)
  Receive Date: 20040305
  Receipt Date: 20040305
  Transmission Date: 20041129
  Serious: No
  Sender: FDA-Public Use
  Company Number: None

PATIENT

DRUGS (3)
  1. BUPIVACAINE [Suspect]
  2. HYDROMORPHONE [Suspect]
  3. PHENYLEPHRINE [Suspect]

REACTIONS (7)
  - ANAPHYLACTIC REACTION [None]
  - ANAPHYLACTOID REACTION [None]
  - BLOOD PRESSURE DECREASED [None]
  - ERYTHEMA [None]
  - OBSTRUCTION [None]
  - TACHYCARDIA [None]
  - WHEEZING [None]
